FAERS Safety Report 6646563-7 (Version None)
Quarter: 2010Q1

REPORT INFORMATION
  Report Type: 
  Country: None (occurrence: None)
  Receive Date: 20100317
  Receipt Date: 20100305
  Transmission Date: 20100710
  Serious: Yes (Other)
  Sender: FDA-Public Use
  Company Number: 006736

PATIENT
  Age: 46 Year
  Sex: Female
  Weight: 62 kg

DRUGS (5)
  1. LACOSAMIDE [Suspect]
     Indication: COMPLEX PARTIAL SEIZURES
     Dosage: (400 MG),  (200 MG BID ORAL)
     Route: 048
     Dates: start: 20091101, end: 20091103
  2. LACOSAMIDE [Suspect]
     Indication: COMPLEX PARTIAL SEIZURES
     Dosage: (400 MG),  (200 MG BID ORAL)
     Route: 048
     Dates: start: 20091109
  3. LYRICA [Concomitant]
  4. TRILEPTAL [Concomitant]
  5. INVESTIGATIONAL DRUG (INVESTIGATIONAL DRUG) [Concomitant]

REACTIONS (7)
  - BLOOD CALCIUM DECREASED [None]
  - BLOOD GLUCOSE INCREASED [None]
  - BLOOD SODIUM DECREASED [None]
  - FALL [None]
  - JAW FRACTURE [None]
  - LEUKOPENIA [None]
  - NO THERAPEUTIC RESPONSE [None]
